FAERS Safety Report 11420970 (Version 4)
Quarter: 2016Q4

REPORT INFORMATION
  Report Type: Report from Study
  Country: US (occurrence: US)
  Receive Date: 20150826
  Receipt Date: 20161022
  Transmission Date: 20170206
  Serious: No
  Sender: FDA-Public Use
  Company Number: PHHY2015US070904

PATIENT
  Age: 44 Year
  Sex: Female

DRUGS (7)
  1. MENOSENSE [Concomitant]
     Indication: HOT FLUSH
     Dosage: 2 DF, BID
     Route: 065
     Dates: start: 20140729
  2. SOLU-MEDROL [Concomitant]
     Active Substance: METHYLPREDNISOLONE SODIUM SUCCINATE
     Indication: MULTIPLE SCLEROSIS RELAPSE
     Dosage: UNK
     Route: 065
     Dates: start: 20150210, end: 20150212
  3. FLUCONAZOLE. [Concomitant]
     Active Substance: FLUCONAZOLE
     Indication: FUNGAL INFECTION
     Dosage: 2 DF, QD
     Route: 065
     Dates: start: 20150216, end: 20150216
  4. GILENYA [Suspect]
     Active Substance: FINGOLIMOD HYDROCHLORIDE
     Indication: MULTIPLE SCLEROSIS
     Dosage: UNK UNK, QD
     Route: 048
  5. MULTI VITAMIN [Concomitant]
     Active Substance: VITAMINS
     Indication: PROPHYLAXIS
     Dosage: 1 DF, TID
     Route: 065
     Dates: start: 20140729
  6. MENOSENSE [Concomitant]
     Indication: NIGHT SWEATS
  7. LIDODERM [Concomitant]
     Active Substance: LIDOCAINE
     Indication: POST HERPETIC NEURALGIA
     Dosage: 5 %, UNK
     Route: 065
     Dates: start: 20150420

REACTIONS (5)
  - Alopecia [Recovered/Resolved]
  - Flushing [Recovered/Resolved]
  - Scab [Recovered/Resolved]
  - Localised oedema [Recovered/Resolved]
  - Lymphocyte count decreased [Unknown]

NARRATIVE: CASE EVENT DATE: 20150326
